FAERS Safety Report 7587240-8 (Version None)
Quarter: 2011Q3

REPORT INFORMATION
  Report Type: 
  Country: None (occurrence: None)
  Receive Date: 20110701
  Receipt Date: 20110627
  Transmission Date: 20111222
  Serious: Yes (Hospitalization)
  Sender: FDA-Public Use
  Company Number: NL-ROCHE-762953

PATIENT
  Sex: Male

DRUGS (17)
  1. CAPECITABINE [Suspect]
     Indication: GASTRIC CANCER
     Route: 048
     Dates: start: 20110215
  2. EPIRUBICIN [Suspect]
     Indication: GASTRIC CANCER
     Dosage: LAST DOSE PRIOR TO SAE: 15 FEBRUARY 2011; FREQ: Q3W.
     Route: 042
     Dates: start: 20110215
  3. ACETAMINOPHEN [Concomitant]
     Dates: start: 20110222
  4. ACETAMINOPHEN [Concomitant]
     Dosage: FREQUENCY: PRN
     Dates: start: 20110225
  5. OXYCODONE HCL [Concomitant]
     Dosage: 5-6 PER DAY.
     Dates: start: 20110209
  6. PRIMPERAN TAB [Concomitant]
     Route: 048
     Dates: start: 20110201
  7. CISPLATIN [Suspect]
     Dosage: LAST DOSE PRIOR TO SAE:31 MARCH 2011. FREQ: Q3W/Q1W, 5 WKS.
     Route: 042
  8. PRIMPERAN TAB [Concomitant]
     Dosage: DAILY DOSE: 20 MG 2N
     Route: 054
     Dates: start: 20110215
  9. OXYCODONE HCL [Concomitant]
     Dosage: FREQUENCY: 5 MG 4X, OXYNORM
     Dates: start: 20110210
  10. NEXIUM [Concomitant]
     Dates: start: 20101018
  11. EPIRUBICIN [Suspect]
     Dosage: LAST DOSE PRIOR TO SAE:  31 MARCH 2011, FREQUENCY: Q 3 W
     Route: 042
  12. CISPLATIN [Suspect]
     Indication: GASTRIC CANCER
     Dosage: LAST DOSE PRIOR TO SAE: 15 FEB 2011. FREQ: Q3W/Q1W, 5 WKS.
     Route: 042
     Dates: start: 20110215
  13. PRIMPERAN TAB [Concomitant]
     Route: 054
     Dates: start: 20110201
  14. LORAZEPAM [Concomitant]
     Dosage: FREQUENCY: PRN
     Dates: start: 20110219
  15. CAPECITABINE [Suspect]
     Dosage: LAST DOSE PRIOR TO SAE: 09 APRIL 2011, FREQUENCY:BID FOR 2 WEEKS, 3 WEEKS BID, 5 WEEKS.
     Route: 048
  16. ACETAMINOPHEN [Concomitant]
     Dates: start: 20110201
  17. PRIMPERAN TAB [Concomitant]
     Route: 054
     Dates: start: 20110225, end: 20110414

REACTIONS (6)
  - DIARRHOEA [None]
  - PROCTALGIA [None]
  - NAUSEA [None]
  - WEIGHT DECREASED [None]
  - DYSPHAGIA [None]
  - OEDEMA [None]
